FAERS Safety Report 11821090 (Version 2)
Quarter: 2017Q3

REPORT INFORMATION
  Report Type: Spontaneous
  Country: SA (occurrence: SA)
  Receive Date: 20151210
  Receipt Date: 20170926
  Transmission Date: 20171127
  Serious: Yes (Other)
  Sender: FDA-Public Use
  Company Number: PHHY2015SA158492

PATIENT
  Age: 4 Month
  Sex: Male

DRUGS (6)
  1. OCTREOTIDE. [Suspect]
     Active Substance: OCTREOTIDE
     Indication: HYPERINSULINISM
     Dosage: 45 MG/KG, QD
     Route: 065
  2. OCTREOTIDE. [Suspect]
     Active Substance: OCTREOTIDE
     Dosage: 30 UG/KG, QD
     Route: 058
  3. DIAZOXIDE [Suspect]
     Active Substance: DIAZOXIDE
     Indication: HYPERINSULINAEMIC HYPOGLYCAEMIA
     Dosage: 20 MG/KG, QD
     Route: 065
  4. SIROLIMUS. [Suspect]
     Active Substance: SIROLIMUS
     Indication: HYPERINSULINAEMIC HYPOGLYCAEMIA
     Dosage: 13 MG/M2, QD (MAXIMUM DOSE ON DAY 60)
     Route: 065
  5. POLYCOSE [Concomitant]
     Indication: PRODUCT USED FOR UNKNOWN INDICATION
     Route: 065
  6. GLUCOSE [Suspect]
     Active Substance: DEXTROSE
     Indication: HYPERINSULINAEMIC HYPOGLYCAEMIA
     Dosage: 18 MG/KG/MIN
     Route: 041

REACTIONS (2)
  - Product use in unapproved indication [Unknown]
  - Hypoglycaemia [Unknown]
